FAERS Safety Report 9927510 (Version 1)
Quarter: 2014Q1

REPORT INFORMATION
  Report Type: Report from Study
  Country: US (occurrence: US)
  Receive Date: 20140227
  Receipt Date: 20140227
  Transmission Date: 20141002
  Serious: Yes (Hospitalization, Other)
  Sender: FDA-Public Use
  Company Number: US-ABBVIE-14P-163-1203834-00

PATIENT
  Age: 51 Year
  Sex: Female
  Weight: 113.5 kg

DRUGS (4)
  1. HUMIRA [Suspect]
     Indication: CROHN^S DISEASE
     Dosage: ON DAY 1
     Dates: start: 2009, end: 2009
  2. HUMIRA [Suspect]
     Dosage: ON DAY 2
     Dates: start: 2009, end: 2009
  3. HUMIRA [Suspect]
     Dosage: ON DAY 15
     Dates: start: 2009, end: 2009
  4. HUMIRA [Suspect]
     Dates: start: 2009, end: 201401

REACTIONS (7)
  - Arthralgia [Not Recovered/Not Resolved]
  - Appendicitis [Recovered/Resolved]
  - Abdominal pain [Not Recovered/Not Resolved]
  - Anal fistula [Not Recovered/Not Resolved]
  - Pain [Not Recovered/Not Resolved]
  - Myalgia [Recovered/Resolved]
  - Lethargy [Recovered/Resolved]
